FAERS Safety Report 16814333 (Version 1)
Quarter: 2019Q3

REPORT INFORMATION
  Report Type: Spontaneous
  Country: US (occurrence: US)
  Receive Date: 20190917
  Receipt Date: 20190917
  Transmission Date: 20191005
  Serious: No
  Sender: FDA-Public Use
  Company Number: US-ALLERGAN-1902912US

PATIENT
  Age: 80 Year
  Sex: Female

DRUGS (12)
  1. LINZESS [Suspect]
     Active Substance: LINACLOTIDE
     Indication: IRRITABLE BOWEL SYNDROME
  2. METOPROLOL. [Concomitant]
     Active Substance: METOPROLOL
     Dosage: 25 MG, UNK
     Route: 048
  3. ASPIRIN. [Concomitant]
     Active Substance: ASPIRIN
     Dosage: 81 MG, UNK
     Route: 048
  4. ISOSORBIDE. [Concomitant]
     Active Substance: ISOSORBIDE
     Dosage: 30 MG, UNK
     Route: 048
  5. DONZAPEL [Concomitant]
     Dosage: 10 MG, UNK
  6. LINZESS [Suspect]
     Active Substance: LINACLOTIDE
     Indication: RECTAL OBSTRUCTION
     Dosage: 72 ?G, QAM
     Route: 048
     Dates: start: 20190110, end: 20190112
  7. LINZESS [Suspect]
     Active Substance: LINACLOTIDE
     Indication: IRRITABLE BOWEL SYNDROME
  8. TRAZODONE [Concomitant]
     Active Substance: TRAZODONE HYDROCHLORIDE
     Indication: SLEEP DISORDER
     Dosage: 100 MG, UNK
     Route: 048
  9. DIPHENATROP [Concomitant]
     Indication: RECTAL OBSTRUCTION
     Dosage: 2.5 MG, UNK
     Route: 048
  10. LISINOPRIL. [Concomitant]
     Active Substance: LISINOPRIL
     Dosage: 20 MG, UNK
     Route: 048
  11. ACETAMINOPHEN. [Concomitant]
     Active Substance: ACETAMINOPHEN
     Dosage: 500 MG, UNK
     Route: 048
  12. GABAPENTIN. [Concomitant]
     Active Substance: GABAPENTIN
     Dosage: 600 MG, QID
     Route: 048

REACTIONS (11)
  - Mental disorder [Not Recovered/Not Resolved]
  - Pain [Recovered/Resolved]
  - Incontinence [Recovered/Resolved]
  - Diarrhoea [Recovered/Resolved]
  - Anal incontinence [Recovered/Resolved]
  - Asthenia [Recovered/Resolved]
  - Off label use [Unknown]
  - Depression [Not Recovered/Not Resolved]
  - Gastrointestinal disorder [Recovering/Resolving]
  - Crying [Recovered/Resolved]
  - Haemorrhoids [Recovered/Resolved]

NARRATIVE: CASE EVENT DATE: 201901
